FAERS Safety Report 20573225 (Version 1)
Quarter: 2022Q1

REPORT INFORMATION
  Report Type: Spontaneous
  Country: US (occurrence: None)
  Receive Date: 20220309
  Receipt Date: 20220309
  Transmission Date: 20220423
  Serious: No
  Sender: FDA-Public Use
  Company Number: None

PATIENT
  Sex: Male

DRUGS (1)
  1. HUMIRA [Suspect]
     Active Substance: ADALIMUMAB
     Indication: Colitis
     Dosage: FREQUENCY : WEEKLY;?
     Route: 058
     Dates: start: 20210921

REACTIONS (3)
  - Proctitis [None]
  - Colitis ulcerative [None]
  - Cytomegalovirus infection [None]
